FAERS Safety Report 6533319-9 (Version None)
Quarter: 2010Q1

REPORT INFORMATION
  Report Type: 
  Country: None (occurrence: None)
  Receive Date: 20100111
  Receipt Date: 20100108
  Transmission Date: 20100710
  Serious: Yes (Hospitalization, Congenital Anomaly)
  Sender: FDA-Public Use
  Company Number: A0681650A

PATIENT
  Sex: Male

DRUGS (5)
  1. PAXIL [Suspect]
     Indication: PANIC ATTACK
     Dates: start: 19960101, end: 20000101
  2. VITAMIN TAB [Concomitant]
  3. TYLENOL (CAPLET) [Concomitant]
  4. TUMS [Concomitant]
  5. ZANTAC [Concomitant]

REACTIONS (5)
  - ATRIAL SEPTAL DEFECT [None]
  - CLEFT PALATE [None]
  - DRUG EXPOSURE DURING PREGNANCY [None]
  - PATENT DUCTUS ARTERIOSUS [None]
  - VENTRICULAR SEPTAL DEFECT [None]
